FAERS Safety Report 10128154 (Version 3)
Quarter: 2014Q2

REPORT INFORMATION
  Report Type: Report from Study
  Country: GB (occurrence: GB)
  Receive Date: 20140428
  Receipt Date: 20140526
  Transmission Date: 20141212
  Serious: Yes (Hospitalization)
  Sender: FDA-Public Use
  Company Number: GB-BIOGENIDEC-2014BI029800

PATIENT
  Sex: Female

DRUGS (6)
  1. AVONEX [Suspect]
     Indication: PRODUCT USED FOR UNKNOWN INDICATION
     Route: 030
  2. OXYBUTYNIN [Concomitant]
  3. MODAFINIL [Concomitant]
  4. AMITRIPTYLINE [Concomitant]
  5. BACLOFEN [Concomitant]
  6. OMEPRAZOLE [Concomitant]

REACTIONS (6)
  - Urinary tract infection [Not Recovered/Not Resolved]
  - General physical health deterioration [Unknown]
  - Secondary progressive multiple sclerosis [Unknown]
  - Multiple sclerosis relapse [Unknown]
  - Gait disturbance [Not Recovered/Not Resolved]
  - Drug ineffective [Unknown]
